FAERS Safety Report 6655250-0 (Version None)
Quarter: 2010Q1

REPORT INFORMATION
  Report Type: 
  Country: None (occurrence: None)
  Receive Date: 20100329
  Receipt Date: 20100319
  Transmission Date: 20100710
  Serious: Yes (Other)
  Sender: FDA-Public Use
  Company Number: KR-ELI_LILLY_AND_COMPANY-KR201003005131

PATIENT
  Age: 56 Year
  Sex: Female

DRUGS (5)
  1. EVISTA [Suspect]
     Dosage: UNK, UNKNOWN
     Route: 065
  2. EVISTA [Suspect]
     Dosage: 60 MG, DAILY (1/D)
     Route: 048
     Dates: start: 20100313
  3. ATIVAN [Concomitant]
     Indication: DEPRESSION
     Dosage: UNK, UNKNOWN
     Route: 065
     Dates: start: 20100125, end: 20100101
  4. ATIVAN [Concomitant]
     Dosage: UNK, UNKNOWN
     Route: 065
     Dates: start: 20100101
  5. MILNACIPRAN HYDROCHLORIDE [Concomitant]
     Indication: DEPRESSION
     Dosage: UNK, UNKNOWN
     Route: 065
     Dates: start: 20100125

REACTIONS (2)
  - HEAD DISCOMFORT [None]
  - SUICIDAL IDEATION [None]
